FAERS Safety Report 10135765 (Version 2)
Quarter: 2014Q2

REPORT INFORMATION
  Report Type: Report from Study
  Country: RU (occurrence: RU)
  Receive Date: 20140428
  Receipt Date: 20140528
  Transmission Date: 20141212
  Serious: Yes (Other)
  Sender: FDA-Public Use
  Company Number: PHHY2014RU051196

PATIENT
  Age: 65 Year
  Sex: Female

DRUGS (4)
  1. ACLASTA [Suspect]
     Indication: OSTEOPOROSIS
     Dosage: UKN
     Route: 042
     Dates: start: 201304
  2. ACLASTA [Suspect]
     Dosage: UKN
     Route: 042
     Dates: start: 201404
  3. ARTROZAN [Concomitant]
     Indication: PSORIATIC ARTHROPATHY
     Dosage: UKN
  4. METYPRED [Concomitant]
     Indication: PSORIATIC ARTHROPATHY
     Dosage: UKN

REACTIONS (2)
  - Spinal fracture [Recovered/Resolved with Sequelae]
  - Spinal pain [Not Recovered/Not Resolved]
